FAERS Safety Report 10893327 (Version 16)
Quarter: 2016Q3

REPORT INFORMATION
  Report Type: Report from Study
  Country: DE (occurrence: KR)
  Receive Date: 20150306
  Receipt Date: 20160906
  Transmission Date: 20161109
  Serious: Yes (Hospitalization)
  Sender: FDA-Public Use
  Company Number: DE-ACTELION-A-US2015-114153

PATIENT
  Age: 39 Year
  Sex: Female

DRUGS (4)
  1. WARFARIN [Concomitant]
     Active Substance: WARFARIN
  2. VENTAVIS [Suspect]
     Active Substance: ILOPROST
     Dosage: UNK, TID
     Route: 055
  3. VENTAVIS [Suspect]
     Active Substance: ILOPROST
     Dosage: 4 TIMES A DAY
     Route: 055
  4. VENTAVIS [Suspect]
     Active Substance: ILOPROST
     Indication: PULMONARY ARTERIAL HYPERTENSION
     Dosage: UNK
     Route: 055
     Dates: start: 20080901

REACTIONS (22)
  - Depressed mood [Unknown]
  - Influenza [Unknown]
  - Productive cough [Unknown]
  - Pyrexia [Unknown]
  - Vomiting [Unknown]
  - Nasopharyngitis [Unknown]
  - Cough [Unknown]
  - Quality of life decreased [Unknown]
  - Depression [Unknown]
  - Nasopharyngitis [Recovered/Resolved]
  - Anaemia [Not Recovered/Not Resolved]
  - Product use issue [Unknown]
  - Anxiety [Unknown]
  - Dizziness [Not Recovered/Not Resolved]
  - Peripheral swelling [Recovered/Resolved]
  - Walking distance test abnormal [Unknown]
  - White blood cell count increased [Unknown]
  - Fear of disease [Unknown]
  - Abdominal discomfort [Unknown]
  - Tooth disorder [Unknown]
  - Haemoptysis [Recovered/Resolved]
  - Pneumonitis [Unknown]

NARRATIVE: CASE EVENT DATE: 20150203
